FAERS Safety Report 5714331-6 (Version None)
Quarter: 2008Q2

REPORT INFORMATION
  Report Type: 
  Country: None (occurrence: None)
  Receive Date: 20080421
  Receipt Date: 20080408
  Transmission Date: 20081010
  Serious: Yes (Other)
  Sender: FDA-Public Use
  Company Number: ESP08000027

PATIENT
  Age: 54 Year
  Sex: Female

DRUGS (2)
  1. RISEDRONATE SODIUM [Suspect]
     Indication: OSTEOPOROSIS
     Dosage: 35 MG, 1 /WEEK, ORAL
     Route: 048
     Dates: start: 20070201, end: 20070618
  2. ENANTYUM (DEXKETOPROFEN TROMETAMOL) TABLET, 12.5 MG [Concomitant]

REACTIONS (2)
  - ARTICULAR CALCIFICATION [None]
  - ROTATOR CUFF SYNDROME [None]
